FAERS Safety Report 19997681 (Version 1)
Quarter: 2021Q4

REPORT INFORMATION
  Report Type: Spontaneous
  Country: US (occurrence: US)
  Receive Date: 20211026
  Receipt Date: 20211026
  Transmission Date: 20220303
  Serious: Yes (Other)
  Sender: FDA-Public Use
  Company Number: US-OTSUKA-2021_036788

PATIENT
  Age: 4 Decade
  Sex: Female

DRUGS (2)
  1. REXULTI [Suspect]
     Active Substance: BREXPIPRAZOLE
     Indication: Depression
     Dosage: 0.25 MG
     Route: 065
  2. PROZAC [Concomitant]
     Active Substance: FLUOXETINE HYDROCHLORIDE
     Indication: Depression
     Dosage: UNK
     Route: 065

REACTIONS (2)
  - Hallucination, auditory [Unknown]
  - Underdose [Unknown]
